FAERS Safety Report 11163665 (Version 1)
Quarter: 2015Q2

REPORT INFORMATION
  Report Type: Spontaneous
  Country: US (occurrence: None)
  Receive Date: 20150603
  Receipt Date: 20150603
  Transmission Date: 20150821
  Serious: Yes (Other)
  Sender: FDA-Public Use
  Company Number: None

PATIENT
  Sex: Female
  Weight: 89.81 kg

DRUGS (21)
  1. POTASSIUM [Concomitant]
     Active Substance: POTASSIUM
  2. ALLOPURINOL. [Concomitant]
     Active Substance: ALLOPURINOL
  3. TOPAMAX [Concomitant]
     Active Substance: TOPIRAMATE
  4. CLONAZEPAM. [Concomitant]
     Active Substance: CLONAZEPAM
  5. REMERON [Concomitant]
     Active Substance: MIRTAZAPINE
  6. FLEXERIL [Concomitant]
     Active Substance: CYCLOBENZAPRINE HYDROCHLORIDE
  7. NAPROXEN. [Concomitant]
     Active Substance: NAPROXEN
  8. MAGNESIUM [Concomitant]
     Active Substance: MAGNESIUM
  9. ORPHENADRINE ER [Concomitant]
  10. LORATADINE. [Concomitant]
     Active Substance: LORATADINE
  11. ZINC [Concomitant]
     Active Substance: ZINC\ZINC CHLORIDE
  12. LOSARTAN [Concomitant]
     Active Substance: LOSARTAN
  13. VITAMIN D3 [Concomitant]
     Active Substance: CHOLECALCIFEROL
  14. LEXAPRO [Suspect]
     Active Substance: ESCITALOPRAM OXALATE
     Indication: DEPRESSION
     Route: 048
     Dates: start: 2004, end: 2004
  15. SIMVASTATIN. [Concomitant]
     Active Substance: SIMVASTATIN
  16. LEVOTHYROXINE [Concomitant]
     Active Substance: LEVOTHYROXINE
  17. MULTIVITAMIN [Concomitant]
     Active Substance: VITAMINS
  18. NORA-BE [Concomitant]
  19. WELLBUTRIN [Concomitant]
     Active Substance: BUPROPION HYDROCHLORIDE
  20. HYDROCODONE [Concomitant]
     Active Substance: HYDROCODONE
  21. IRON [Concomitant]
     Active Substance: IRON

REACTIONS (2)
  - Tinnitus [None]
  - Therapy cessation [None]

NARRATIVE: CASE EVENT DATE: 2004
